FAERS Safety Report 7285041-1 (Version None)
Quarter: 2011Q1

REPORT INFORMATION
  Report Type: 
  Country: None (occurrence: None)
  Receive Date: 20110106
  Receipt Date: 20110106
  Transmission Date: 20110831
  Serious: Yes (Life-Threatening)
  Sender: FDA-Public Use
  Company Number: None

PATIENT
  Age: 61 Year
  Sex: Female
  Weight: 81.6475 kg

DRUGS (2)
  1. GEODON [Suspect]
     Dosage: GEODON UPPED 60MG TO 120MG (APPROX JULY TO OCT.)
  2. METOPROLOL 20CC ER 100 MG. WATSON LA [Suspect]

REACTIONS (6)
  - PRURITUS [None]
  - DEPRESSION [None]
  - MALAISE [None]
  - NAUSEA [None]
  - VIRAL INFECTION [None]
  - FEELING ABNORMAL [None]
